FAERS Safety Report 5777822-8 (Version None)
Quarter: 2008Q2

REPORT INFORMATION
  Report Type: 
  Country: None (occurrence: None)
  Receive Date: 20080618
  Receipt Date: 20080612
  Transmission Date: 20081010
  Serious: Yes (Death)
  Sender: FDA-Public Use
  Company Number: JP-WYE-H04513608

PATIENT
  Age: 78 Year
  Sex: Male

DRUGS (21)
  1. AMIODARONE HCL [Suspect]
     Indication: ATRIAL FIBRILLATION
     Route: 042
     Dates: start: 20071128, end: 20071128
  2. AMIODARONE HCL [Suspect]
     Route: 042
     Dates: start: 20071128, end: 20071128
  3. AMIODARONE HCL [Suspect]
     Route: 042
     Dates: start: 20071128, end: 20071130
  4. SHINBIT [Concomitant]
     Route: 042
     Dates: start: 20071128, end: 20071128
  5. HEPARIN [Concomitant]
     Dosage: 3000 UNIT, FREQUENCY UNSPECIFIED
     Route: 042
     Dates: start: 20071128, end: 20071128
  6. HEPARIN [Concomitant]
     Dosage: 15000 UNITS TO 20000 UNITS, FREQUENCY UNSPECIFIED
     Route: 042
     Dates: start: 20071128, end: 20071130
  7. SIGMART [Concomitant]
     Dosage: 72 MG, FREQUENCY UNSPECIFIED
     Route: 042
     Dates: start: 20071128, end: 20071130
  8. INOVAN [Concomitant]
     Dosage: 360MG TO 720MG, FREQUENCY UNSPECIFIED
     Route: 042
     Dates: start: 20071128, end: 20071130
  9. DOBUTAMINE HCL [Concomitant]
     Dosage: 360MG TO 720MG, FREQUENCY UNSPECIFIED
     Route: 042
     Dates: start: 20071128, end: 20071130
  10. LIDOCAINE 2% [Concomitant]
     Dosage: 1440MG, FREQUENCY UNSPECIFIED
     Route: 042
     Dates: start: 20071128, end: 20071130
  11. LASIX [Concomitant]
     Dosage: 20MG, FREQUENCY UNSPECIFIED
     Route: 042
     Dates: start: 20071128, end: 20071130
  12. LASIX [Concomitant]
     Dosage: 100MG, FREQUENCY UNSPECIFIED
     Route: 042
     Dates: start: 20071129, end: 20071130
  13. DIPRIVAN [Concomitant]
     Indication: PAIN
     Dosage: 1000MG TO 2000MG, FREQUENCY UNSPECIFIED
     Route: 042
     Dates: start: 20071129, end: 20071130
  14. HUMALIN [Concomitant]
     Dosage: 8 UNITS, FREQUENCY UNSPECIFIED
     Route: 058
     Dates: start: 20071128, end: 20071130
  15. HUMALIN [Concomitant]
     Dosage: 16 UNITS, FREQUENCY UNSPECIFIED
     Route: 058
     Dates: start: 20071129, end: 20071130
  16. DEPAKENE [Concomitant]
     Dosage: 900MG, FREQUENCY UNSPECIFIED
     Route: 054
     Dates: start: 20071128, end: 20071130
  17. LANSOPRAZOLE [Concomitant]
     Dosage: 30MG, FREQUENCY UNSPECIFIED
     Route: 042
     Dates: start: 20071128
  18. NOREPINEPHRINE [Concomitant]
     Dosage: DOSE UNKNOWN
     Route: 065
     Dates: start: 20071129, end: 20071130
  19. EPINEPHRINE [Concomitant]
     Route: 042
     Dates: start: 20071128, end: 20071128
  20. LIDOCAINE [Concomitant]
     Dosage: 100MG TO 200MG, FREQUENCY UNSPECIFIED
     Route: 042
     Dates: start: 20071128, end: 20071128
  21. MAGNESIUM SULFATE [Concomitant]
     Route: 042
     Dates: start: 20071128, end: 20071128

REACTIONS (3)
  - MULTI-ORGAN FAILURE [None]
  - SHOCK [None]
  - VENTRICULAR FIBRILLATION [None]
